FAERS Safety Report 19610462 (Version 2)
Quarter: 2022Q1

REPORT INFORMATION
  Report Type: Spontaneous
  Country: US (occurrence: US)
  Receive Date: 20210726
  Receipt Date: 20220124
  Transmission Date: 20220423
  Serious: Yes (Other)
  Sender: FDA-Public Use
  Company Number: US-GILEAD-2021-0541777

PATIENT
  Age: 52 Year
  Sex: Male
  Weight: 180 kg

DRUGS (53)
  1. ATRIPLA [Suspect]
     Active Substance: EFAVIRENZ\EMTRICITABINE\TENOFOVIR DISOPROXIL FUMARATE
     Indication: HIV infection
     Dosage: UNK
     Route: 048
     Dates: start: 20061009, end: 20091204
  2. TRUVADA [Suspect]
     Active Substance: EMTRICITABINE\TENOFOVIR DISOPROXIL FUMARATE
     Indication: HIV infection
     Dosage: UNK
     Route: 048
     Dates: start: 2006
  3. TRUVADA [Suspect]
     Active Substance: EMTRICITABINE\TENOFOVIR DISOPROXIL FUMARATE
     Dosage: UNK
     Route: 065
     Dates: start: 20051115, end: 20060620
  4. TRUVADA [Suspect]
     Active Substance: EMTRICITABINE\TENOFOVIR DISOPROXIL FUMARATE
     Dosage: UNK
     Route: 065
     Dates: start: 20091218, end: 20100305
  5. EPZICOM [Concomitant]
     Active Substance: ABACAVIR SULFATE\LAMIVUDINE
  6. SUSTIVA [Concomitant]
     Active Substance: EFAVIRENZ
  7. TRIUMEQ [Concomitant]
     Active Substance: ABACAVIR SULFATE\DOLUTEGRAVIR SODIUM\LAMIVUDINE
  8. TRIZIVIR [Concomitant]
     Active Substance: ABACAVIR SULFATE\LAMIVUDINE\ZIDOVUDINE
  9. ALPRAZOLAM [Concomitant]
     Active Substance: ALPRAZOLAM
  10. AMLODIPINE [Concomitant]
     Active Substance: AMLODIPINE BESYLATE
  11. AMLODIPINE BESYLATE\BENAZEPRIL HYDROCHLORIDE [Concomitant]
     Active Substance: AMLODIPINE BESYLATE\BENAZEPRIL HYDROCHLORIDE
  12. AMLODIPINE BESYLATE [Concomitant]
     Active Substance: AMLODIPINE BESYLATE
  13. AMOXICILLIN [Concomitant]
     Active Substance: AMOXICILLIN
  14. AMOXICILLIN\CLAVULANATE POTASSIUM [Concomitant]
     Active Substance: AMOXICILLIN\CLAVULANATE POTASSIUM
  15. ATENOLOL [Concomitant]
     Active Substance: ATENOLOL
  16. ATORVASTATIN [Concomitant]
     Active Substance: ATORVASTATIN
  17. ATRALIN [TRETINOIN] [Concomitant]
  18. AZELASTINE [Concomitant]
     Active Substance: AZELASTINE
  19. AZITHROMYCIN [Concomitant]
     Active Substance: AZITHROMYCIN
  20. BACLOFEN [Concomitant]
     Active Substance: BACLOFEN
  21. CIALIS [Concomitant]
     Active Substance: TADALAFIL
  22. CRESTOR [Concomitant]
     Active Substance: ROSUVASTATIN CALCIUM
  23. CYANOCOBALAMIN [Concomitant]
     Active Substance: CYANOCOBALAMIN
  24. CYCLOBENZAPRINE [Concomitant]
     Active Substance: CYCLOBENZAPRINE
  25. DOVATO [Concomitant]
     Active Substance: DOLUTEGRAVIR SODIUM\LAMIVUDINE
  26. DOXYCYCLINE HYCLATE [Concomitant]
     Active Substance: DOXYCYCLINE HYCLATE
  27. ELIDEL [Concomitant]
     Active Substance: PIMECROLIMUS
  28. ETODOLAC [Concomitant]
     Active Substance: ETODOLAC
  29. HYDROCHLOROTHIAZIDE [Concomitant]
     Active Substance: HYDROCHLOROTHIAZIDE
  30. IBUPROFEN [Concomitant]
     Active Substance: IBUPROFEN
  31. LIDOCAINE [Concomitant]
     Active Substance: LIDOCAINE
  32. MELOXICAM [Concomitant]
     Active Substance: MELOXICAM
  33. METHIMAZOLE [Concomitant]
     Active Substance: METHIMAZOLE
  34. METHYLPREDNISOLONE [Concomitant]
     Active Substance: METHYLPREDNISOLONE
  35. NALTREXONE [Concomitant]
     Active Substance: NALTREXONE
  36. NAPROXEN [Concomitant]
     Active Substance: NAPROXEN
  37. NASONEX [Concomitant]
     Active Substance: MOMETASONE FUROATE
  38. NITROSTAT [Concomitant]
     Active Substance: NITROGLYCERIN
  39. NYSTATIN [Concomitant]
     Active Substance: NYSTATIN
  40. OMEPRAZOLE [Concomitant]
     Active Substance: OMEPRAZOLE
  41. PATANASE [Concomitant]
     Active Substance: OLOPATADINE HYDROCHLORIDE
  42. QUETIAPINE FUMARATE [Concomitant]
     Active Substance: QUETIAPINE FUMARATE
  43. RAPAFLO [Concomitant]
     Active Substance: SILODOSIN
  44. SERTRALINE [Concomitant]
     Active Substance: SERTRALINE HYDROCHLORIDE
  45. SUCRALFATE [Concomitant]
     Active Substance: SUCRALFATE
  46. TADALAFIL [Concomitant]
     Active Substance: TADALAFIL
  47. TAMSULOSIN [Concomitant]
     Active Substance: TAMSULOSIN
  48. TRAMADOL [Concomitant]
     Active Substance: TRAMADOL
  49. TRIAMCINOLONE [Concomitant]
     Active Substance: TRIAMCINOLONE
  50. VIAGRA [Concomitant]
     Active Substance: SILDENAFIL CITRATE
  51. VITAMIN B [Concomitant]
     Active Substance: VITAMIN B
  52. VITAMIN D2 [Concomitant]
     Active Substance: ERGOCALCIFEROL
  53. ZOLPIDEM [Concomitant]
     Active Substance: ZOLPIDEM TARTRATE

REACTIONS (7)
  - Chronic kidney disease [Not Recovered/Not Resolved]
  - Renal impairment [Not Recovered/Not Resolved]
  - Anxiety [Not Recovered/Not Resolved]
  - Pain [Not Recovered/Not Resolved]
  - Emotional distress [Not Recovered/Not Resolved]
  - Anhedonia [Not Recovered/Not Resolved]
  - Depression [Not Recovered/Not Resolved]

NARRATIVE: CASE EVENT DATE: 20060601
